FAERS Safety Report 8654569 (Version 4)
Quarter: 2016Q3

REPORT INFORMATION
  Report Type: Spontaneous
  Country: FR (occurrence: FR)
  Receive Date: 20120709
  Receipt Date: 20160718
  Transmission Date: 20161109
  Serious: Yes (Life-Threatening, Hospitalization, Other)
  Sender: FDA-Public Use
  Company Number: FR-ASTRAZENECA-2012SE45754

PATIENT
  Age: 9643 Day
  Sex: Female
  Weight: 51 kg

DRUGS (8)
  1. LIDOCAINE HCL [Suspect]
     Active Substance: LIDOCAINE HYDROCHLORIDE
     Indication: LOCAL ANAESTHESIA
     Dosage: 2.0DF ONCE/SINGLE ADMINISTRATION
     Route: 065
     Dates: start: 20120529, end: 20120529
  2. PREVISCAN [Concomitant]
     Active Substance: FLUINDIONE
  3. KARDEGIC [Concomitant]
     Active Substance: ASPIRIN LYSINE
  4. LIDOCAINE AGUETTANT [Suspect]
     Active Substance: LIDOCAINE
     Route: 065
  5. DAFALGAN [Concomitant]
     Active Substance: ACETAMINOPHEN
     Dosage: AS REQUIRED
  6. INEXIUM [Concomitant]
     Active Substance: ESOMEPRAZOLE
  7. FERROUS SULFATE. [Concomitant]
     Active Substance: FERROUS SULFATE
  8. FLODINE [Concomitant]

REACTIONS (15)
  - Ischaemic cerebral infarction [Unknown]
  - Seizure [Not Recovered/Not Resolved]
  - Bradycardia [Not Recovered/Not Resolved]
  - Procedural pneumothorax [Unknown]
  - Nervous system disorder [Unknown]
  - Post procedural haemorrhage [Unknown]
  - Fatigue [Unknown]
  - Pneumonia staphylococcal [Unknown]
  - Cardiac arrest [Not Recovered/Not Resolved]
  - Coma [Unknown]
  - Wrong drug administered [Recovered/Resolved]
  - Multiple organ dysfunction syndrome [Unknown]
  - Infection [Unknown]
  - Ventricular dysfunction [Unknown]
  - Haemothorax [Unknown]

NARRATIVE: CASE EVENT DATE: 20120529
